FAERS Safety Report 23540507 (Version 1)
Quarter: 2024Q1

REPORT INFORMATION
  Report Type: Spontaneous
  Country: US (occurrence: US)
  Receive Date: 20240219
  Receipt Date: 20240219
  Transmission Date: 20240410
  Serious: No
  Sender: FDA-Public Use
  Company Number: US-Stemline Therapeutics, Inc.-2023ST004823

PATIENT
  Age: 59 Year
  Sex: Female

DRUGS (2)
  1. ORSERDU [Suspect]
     Active Substance: ELACESTRANT
     Indication: Product used for unknown indication
     Dosage: 345 MG, ONCE A DAY
     Route: 048
     Dates: start: 20230706
  2. TYLENOL [Concomitant]
     Active Substance: ACETAMINOPHEN
     Indication: Product used for unknown indication

REACTIONS (16)
  - Diarrhoea [Unknown]
  - Hot flush [Unknown]
  - Body temperature fluctuation [Unknown]
  - Somnolence [Unknown]
  - Dehydration [Unknown]
  - Adverse event [Unknown]
  - Toothache [Unknown]
  - Dental discomfort [Unknown]
  - Gingival pain [Unknown]
  - Tooth loss [Unknown]
  - Cardiac discomfort [Unknown]
  - Dysphagia [Unknown]
  - Oropharyngeal pain [Unknown]
  - Pollakiuria [Unknown]
  - Vomiting [Unknown]
  - Dyspnoea [Unknown]
